FAERS Safety Report 4644738-X (Version None)
Quarter: 2005Q2

REPORT INFORMATION
  Report Type: 
  Country: None (occurrence: None)
  Receive Date: 20050425
  Receipt Date: 20050425
  Transmission Date: 20051028
  Serious: Yes (Hospitalization)
  Sender: FDA-Public Use
  Company Number: None

PATIENT
  Age: 36 Year
  Sex: Male
  Weight: 110.6777 kg

DRUGS (1)
  1. BUPROPION [Suspect]
     Indication: DEPRESSION
     Dosage: 200MG  QAM ORAL
     Route: 048
     Dates: start: 20041217, end: 20041221

REACTIONS (3)
  - CONVULSION [None]
  - MUSCLE SPASMS [None]
  - PARAESTHESIA [None]
